FAERS Safety Report 9969932 (Version 1)
Quarter: 2014Q1

REPORT INFORMATION
  Report Type: Spontaneous
  Country: US (occurrence: US)
  Receive Date: 20140306
  Receipt Date: 20140306
  Transmission Date: 20141002
  Serious: No
  Sender: FDA-Public Use
  Company Number: US-SANOFI-AVENTIS-2013SA052625

PATIENT
  Age: 79 Year
  Sex: Female

DRUGS (3)
  1. GAVISCON [Suspect]
  2. PEPCID [Concomitant]
  3. ZANTAC [Concomitant]

REACTIONS (2)
  - Abdominal distension [Unknown]
  - Abdominal pain [Unknown]
